FAERS Safety Report 7386735-X (Version None)
Quarter: 2011Q1

REPORT INFORMATION
  Report Type: 
  Country: None (occurrence: None)
  Receive Date: 20110323
  Receipt Date: 20101029
  Transmission Date: 20110831
  Serious: Yes (Hospitalization)
  Sender: FDA-Public Use
  Company Number: GB-021376

PATIENT
  Age: 86 Year
  Sex: Male

DRUGS (1)
  1. (CHLORAMBUCIL) [Suspect]
     Dosage: 10MG/M2 AT DAYS 1-7 EVERY 28 DAYS
     Route: 048
     Dates: start: 20100617

REACTIONS (2)
  - ACUTE RESPIRATORY DISTRESS SYNDROME [None]
  - NEUTROPENIC SEPSIS [None]
